FAERS Safety Report 19830738 (Version 1)
Quarter: 2021Q3

REPORT INFORMATION
  Report Type: Spontaneous
  Country: US (occurrence: US)
  Receive Date: 20210914
  Receipt Date: 20210914
  Transmission Date: 20211014
  Serious: Yes (Life-Threatening, Hospitalization, Disabling)
  Sender: FDA-Public Use
  Company Number: None

PATIENT

DRUGS (17)
  1. VITAMIN C [Concomitant]
     Active Substance: ASCORBIC ACID
  2. AMINO ACID [Concomitant]
     Active Substance: AMINO ACIDS, SOURCE UNSPECIFIED
  3. BLOOD PRESSURE MEDS [Concomitant]
  4. ATENOLOL. [Concomitant]
     Active Substance: ATENOLOL
  5. LISINOPRIL. [Concomitant]
     Active Substance: LISINOPRIL
  6. FISH OIL [Concomitant]
     Active Substance: FISH OIL
  7. SOFOSBUVIR?VELPATASVIR [Suspect]
     Active Substance: SOFOSBUVIR\VELPATASVIR
  8. HEP C MEDS [Concomitant]
  9. GARLIC OIL [Concomitant]
     Active Substance: GARLIC OIL
  10. RIBAVIRIN. [Suspect]
     Active Substance: RIBAVIRIN
     Indication: HEPATITIS C
     Dosage: ?          QUANTITY:1PILL/W/3PILLS MOR;?
     Route: 048
     Dates: start: 20210604, end: 20210620
  11. CALCIUM [Concomitant]
     Active Substance: CALCIUM
  12. LORATADINE. [Concomitant]
     Active Substance: LORATADINE
  13. CARVEDILOL. [Concomitant]
     Active Substance: CARVEDILOL
  14. VITAMIN E [Concomitant]
     Active Substance: .ALPHA.-TOCOPHEROL
  15. ALLERGY MEDS [Concomitant]
  16. MILK THISTLE [Concomitant]
     Active Substance: DIETARY SUPPLEMENT\HERBALS\MILK THISTLE
  17. VIT D [Concomitant]
     Active Substance: VITAMIN D NOS

REACTIONS (7)
  - Diarrhoea [None]
  - Headache [None]
  - Cough [None]
  - Haematochezia [None]
  - Peripheral swelling [None]
  - Vision blurred [None]
  - Haemoglobin decreased [None]

NARRATIVE: CASE EVENT DATE: 20210604
